FAERS Safety Report 16118557 (Version 1)
Quarter: 2019Q1

REPORT INFORMATION
  Report Type: Spontaneous
  Country: FR (occurrence: FR)
  Receive Date: 20190326
  Receipt Date: 20190326
  Transmission Date: 20190418
  Serious: Yes (Hospitalization)
  Sender: FDA-Public Use
  Company Number: FR-ASTRAZENECA-2019SE43429

PATIENT
  Age: 94 Year
  Sex: Male
  Weight: 87.2 kg

DRUGS (1)
  1. INEXIUM [Suspect]
     Active Substance: ESOMEPRAZOLE
     Indication: PROPHYLAXIS
     Route: 048
     Dates: start: 201401, end: 201811

REACTIONS (2)
  - Dysphagia [Recovering/Resolving]
  - General physical health deterioration [Recovering/Resolving]

NARRATIVE: CASE EVENT DATE: 20181222
